FAERS Safety Report 4624249-8 (Version None)
Quarter: 2005Q1

REPORT INFORMATION
  Report Type: 
  Country: None (occurrence: None)
  Receive Date: 20050329
  Receipt Date: 20050329
  Transmission Date: 20050727
  Serious: Yes (Death)
  Sender: FDA-Public Use
  Company Number: None

PATIENT
  Age: 38 Year
  Sex: Female

DRUGS (9)
  1. NEURONTIN [Suspect]
     Indication: BIPOLAR DISORDER
     Dosage: 300MG 3X DAILY
  2. SULINDAC [Concomitant]
  3. DARVOCET-N 100 [Concomitant]
  4. ALPRAZOLAM [Concomitant]
  5. BUPROPION HCL [Concomitant]
  6. PHENTERMINE [Concomitant]
  7. ACYCLOVIR [Concomitant]
  8. RANITIDINE [Concomitant]
  9. LEVOXYL [Concomitant]

REACTIONS (2)
  - COMPLETED SUICIDE [None]
  - OVERDOSE [None]
